FAERS Safety Report 24709546 (Version 2)
Quarter: 2025Q3

REPORT INFORMATION
  Report Type: Spontaneous
  Country: JP (occurrence: JP)
  Receive Date: 20241209
  Receipt Date: 20250803
  Transmission Date: 20251021
  Serious: Yes (Death, Other)
  Sender: ALEXION PHARMACEUTICALS
  Company Number: JP-ASTRAZENECA-240106603_064320_P_1

PATIENT
  Age: 83 Year
  Sex: Male

DRUGS (2)
  1. ANDEXXA [Suspect]
     Active Substance: ANDEXANET ALFA
     Indication: Subdural haematoma
  2. ANDEXXA [Suspect]
     Active Substance: ANDEXANET ALFA
     Indication: Haematoma muscle

REACTIONS (2)
  - Sepsis [Fatal]
  - Cerebral infarction [Not Recovered/Not Resolved]

NARRATIVE: CASE EVENT DATE: 20240101
